FAERS Safety Report 4345353-8 (Version None)
Quarter: 2004Q2

REPORT INFORMATION
  Report Type: 
  Country: None (occurrence: None)
  Receive Date: 20040422
  Receipt Date: 20040422
  Transmission Date: 20050107
  Serious: Yes (Other)
  Sender: FDA-Public Use
  Company Number: None

PATIENT
  Sex: Male
  Weight: 127.0072 kg

DRUGS (2)
  1. PAXIL [Suspect]
     Indication: OBSESSIVE-COMPULSIVE DISORDER
     Dosage: 30 MG 1 ORAL
     Route: 048
     Dates: start: 20020301, end: 20040421
  2. METFORMIN HCL [Concomitant]

REACTIONS (12)
  - AMNESIA [None]
  - BLOOD CHOLESTEROL INCREASED [None]
  - BLOOD GLUCOSE INCREASED [None]
  - FATIGUE [None]
  - HEADACHE [None]
  - INSOMNIA [None]
  - LETHARGY [None]
  - MALAISE [None]
  - PARAESTHESIA [None]
  - SLEEP DISORDER [None]
  - TINNITUS [None]
  - WEIGHT INCREASED [None]
